FAERS Safety Report 14813691 (Version 3)
Quarter: 2018Q2

REPORT INFORMATION
  Report Type: Spontaneous
  Country: US (occurrence: US)
  Receive Date: 20180426
  Receipt Date: 20180509
  Transmission Date: 20180711
  Serious: Yes (Hospitalization, Other)
  Sender: FDA-Public Use
  Company Number: US-ROCHE-2111988

PATIENT
  Age: 35 Year
  Sex: Female
  Weight: 51.9 kg

DRUGS (4)
  1. OCREVUS [Suspect]
     Active Substance: OCRELIZUMAB
     Indication: MULTIPLE SCLEROSIS
     Dosage: 23/MAR/2018
     Route: 065
     Dates: start: 20180309
  2. VANCOMYCIN [Concomitant]
     Active Substance: VANCOMYCIN
  3. NARCAN [Concomitant]
     Active Substance: NALOXONE HYDROCHLORIDE
     Dosage: NO
     Route: 065
  4. KEPPRA [Concomitant]
     Active Substance: LEVETIRACETAM

REACTIONS (7)
  - Pyrexia [Recovered/Resolved]
  - Tachycardia [Recovered/Resolved]
  - Roseolovirus test positive [Not Recovered/Not Resolved]
  - Encephalitis [Unknown]
  - Status epilepticus [Unknown]
  - Depressed level of consciousness [Recovered/Resolved]
  - Tachypnoea [Recovered/Resolved]

NARRATIVE: CASE EVENT DATE: 20180408
